FAERS Safety Report 25122901 (Version 1)
Quarter: 2025Q1

REPORT INFORMATION
  Report Type: Report from Study
  Country: EG (occurrence: EG)
  Receive Date: 20250326
  Receipt Date: 20250326
  Transmission Date: 20250408
  Serious: Yes (Hospitalization)
  Sender: ROCHE
  Company Number: EG-ROCHE-10000236370

PATIENT
  Age: 75 Year
  Sex: Female
  Weight: 70 kg

DRUGS (4)
  1. PERJETA [Suspect]
     Active Substance: PERTUZUMAB
     Indication: Breast cancer
     Route: 042
     Dates: start: 20241120
  2. EXFORGE [Concomitant]
     Active Substance: AMLODIPINE BESYLATE\VALSARTAN
     Indication: Hypertension
     Route: 048
  3. LANTUS [Concomitant]
     Active Substance: INSULIN GLARGINE
     Indication: Diabetes mellitus
  4. GLUCOPHAGE [Concomitant]
     Active Substance: METFORMIN HYDROCHLORIDE
     Indication: Diabetes mellitus
     Route: 048

REACTIONS (2)
  - Viral infection [Recovering/Resolving]
  - Dehydration [Recovering/Resolving]

NARRATIVE: CASE EVENT DATE: 20250220
